FAERS Safety Report 8057525-X (Version None)
Quarter: 2012Q1

REPORT INFORMATION
  Report Type: 
  Country: None (occurrence: None)
  Receive Date: 20120119
  Receipt Date: 20120117
  Transmission Date: 20120608
  Serious: Yes (Death)
  Sender: FDA-Public Use
  Company Number: US-ASTRAZENECA-2011SE67382

PATIENT
  Age: 73 Year
  Sex: Male
  Weight: 96.6 kg

DRUGS (11)
  1. SPIRIVA [Concomitant]
  2. NITROGLYCERIN [Concomitant]
  3. PREDNISONE TAB [Concomitant]
  4. CARDURA [Concomitant]
  5. DILTIAZEM HCL [Concomitant]
  6. PROAIR HFA [Concomitant]
  7. ENALAPRIL MALEATE [Concomitant]
  8. SYMBICORT [Suspect]
     Indication: CHRONIC OBSTRUCTIVE PULMONARY DISEASE
     Dosage: 2 PUFFS BID
     Route: 055
     Dates: start: 20100730
  9. ASPIRIN [Concomitant]
  10. HYDROCHLOROTHIAZIDE [Concomitant]
  11. DIGOXIN [Concomitant]

REACTIONS (1)
  - PNEUMONIA [None]
